FAERS Safety Report 4707136-6 (Version None)
Quarter: 2005Q3

REPORT INFORMATION
  Report Type: 
  Country: None (occurrence: None)
  Receive Date: 20050701
  Receipt Date: 20050620
  Transmission Date: 20060218
  Serious: Yes (Other)
  Sender: FDA-Public Use
  Company Number: 2005BH000374

PATIENT
  Age: 70 Year
  Sex: Female

DRUGS (1)
  1. VANCOMYCIN [Suspect]

REACTIONS (2)
  - ARTHRITIS BACTERIAL [None]
  - LINEAR IGA DISEASE [None]
